FAERS Safety Report 4571533-2 (Version None)
Quarter: 2005Q1

REPORT INFORMATION
  Report Type: 
  Country: None (occurrence: None)
  Receive Date: 20050203
  Receipt Date: 20050203
  Transmission Date: 20050727
  Serious: Yes (Other)
  Sender: FDA-Public Use
  Company Number: None

PATIENT
  Sex: Female
  Weight: 64.4108 kg

DRUGS (2)
  1. TRANXENE [Suspect]
     Indication: ANXIETY
     Dosage: 7.5 MG ONE Q 6 H PRN
  2. LOPID [Suspect]
     Indication: HYPERLIPIDAEMIA
     Dosage: 600 MG PO BID
     Route: 048

REACTIONS (2)
  - DRUG EFFECT DECREASED [None]
  - PHARMACEUTICAL PRODUCT COMPLAINT [None]
